FAERS Safety Report 16705354 (Version 1)
Quarter: 2019Q3

REPORT INFORMATION
  Report Type: Spontaneous
  Country: JP (occurrence: JP)
  Receive Date: 20190815
  Receipt Date: 20190815
  Transmission Date: 20191004
  Serious: Yes (Hospitalization)
  Sender: FDA-Public Use
  Company Number: JP-ACTELION-A-CH2019-194154

PATIENT
  Age: 70 Year
  Sex: Female

DRUGS (1)
  1. BOSENTAN. [Suspect]
     Active Substance: BOSENTAN
     Indication: SCLERODERMA ASSOCIATED DIGITAL ULCER
     Route: 048

REACTIONS (9)
  - Gangrene [Unknown]
  - Gastrointestinal haemorrhage [Unknown]
  - Infection [Unknown]
  - Arterial bypass occlusion [Unknown]
  - Pulmonary embolism [Unknown]
  - Peripheral artery bypass [Unknown]
  - Condition aggravated [Unknown]
  - Respiratory failure [Unknown]
  - Venous operation [Unknown]
